FAERS Safety Report 8456132-4 (Version None)
Quarter: 2012Q2

REPORT INFORMATION
  Report Type: 
  Country: None (occurrence: None)
  Receive Date: 20120323
  Receipt Date: 20110823
  Transmission Date: 20120825
  Serious: Yes (Hospitalization, Other)
  Sender: FDA-Public Use
  Company Number: 163-21880-11082960

PATIENT
  Age: 61 Year
  Sex: Male
  Weight: 104.3 kg

DRUGS (13)
  1. REVLIMID [Suspect]
     Indication: MULTIPLE MYELOMA
     Dosage: 15 MG, 1 IN 1 D, PO; 10 MG, 1 IN 1 D, PO; 10 MG, QD ON DAYS 1-20, PO
     Route: 048
     Dates: start: 20100401
  2. REVLIMID [Suspect]
     Indication: MULTIPLE MYELOMA
     Dosage: 15 MG, 1 IN 1 D, PO; 10 MG, 1 IN 1 D, PO; 10 MG, QD ON DAYS 1-20, PO
     Route: 048
     Dates: start: 20100801
  3. REVLIMID [Suspect]
     Indication: MULTIPLE MYELOMA
     Dosage: 15 MG, 1 IN 1 D, PO; 10 MG, 1 IN 1 D, PO; 10 MG, QD ON DAYS 1-20, PO
     Route: 048
     Dates: start: 20090424
  4. LEVOTHYROXINE SODIUM [Concomitant]
  5. ASPIRIN [Concomitant]
  6. AMBIEN [Concomitant]
  7. MAGNESIUM (MAGNESIUM) [Concomitant]
  8. PRILOSEC [Concomitant]
  9. ZANTAC [Concomitant]
  10. ACYCLOVIR [Concomitant]
  11. AMIODARONE HCL [Concomitant]
  12. K-PHOS (POTASSIUM PHOSPHATE MONOBASIC) [Concomitant]
  13. VELCADE [Concomitant]

REACTIONS (3)
  - HYPOKALAEMIA [None]
  - HYPOMAGNESAEMIA [None]
  - ATRIAL FIBRILLATION [None]
